FAERS Safety Report 9302538 (Version 1)
Quarter: 2013Q2

REPORT INFORMATION
  Report Type: Spontaneous
  Country: US (occurrence: US)
  Receive Date: 20130522
  Receipt Date: 20130522
  Transmission Date: 20140414
  Serious: No
  Sender: FDA-Public Use
  Company Number: US-009507513-1305USA009795

PATIENT
  Age: 64 Year
  Sex: Female

DRUGS (1)
  1. DULERA [Suspect]
     Indication: LUNG DISORDER
     Dosage: UNK UNK, BID
     Route: 055
     Dates: start: 201304

REACTIONS (2)
  - Vision blurred [Not Recovered/Not Resolved]
  - Oropharyngeal pain [Not Recovered/Not Resolved]
